FAERS Safety Report 9519219 (Version 2)
Quarter: 2014Q1

REPORT INFORMATION
  Report Type: Spontaneous
  Country: US (occurrence: None)
  Receive Date: 20130305
  Receipt Date: 20140306
  Transmission Date: 20141002
  Serious: Yes (Other)
  Sender: FDA-Public Use
  Company Number: 163-21880-12110541

PATIENT
  Age: 69 Year
  Sex: Male

DRUGS (7)
  1. REVLIMID [Suspect]
     Indication: PLASMA CELL MYELOMA
     Dosage: 10 MG, 1 IN 1 D, PO
     Route: 048
     Dates: start: 20100707
  2. B COMPLEX (BECOSYM FORTE) (TABLETS) [Concomitant]
  3. CLONAZEPAM (CLONAZEPAM) (TABLETS) [Concomitant]
  4. ESTER C-500 (CALCIUM ASCORBATE) (TABLETS) [Concomitant]
  5. OMEPRAZOLE (OMEPRAZOLE) (TABLETS) [Concomitant]
  6. VITAMIN B-12 (CYANOCOBALAMIN) [Concomitant]
  7. VITAMIN E (TOCOPHEROL) (TABLETS) [Concomitant]

REACTIONS (3)
  - Full blood count decreased [None]
  - Laboratory test abnormal [None]
  - Drug dose omission [None]
